FAERS Safety Report 4761890-6 (Version None)
Quarter: 2005Q3

REPORT INFORMATION
  Report Type: 
  Country: None (occurrence: None)
  Receive Date: 20050906
  Receipt Date: 20050829
  Transmission Date: 20060218
  Serious: Yes (Other)
  Sender: FDA-Public Use
  Company Number: IE-BRISTOL-MYERS SQUIBB COMPANY-13095526

PATIENT
  Age: 23 Year
  Sex: Female

DRUGS (2)
  1. ABILIFY [Suspect]
     Route: 048
  2. TRICYCLIC ANTIDEPRESSANTS [Concomitant]

REACTIONS (3)
  - COAGULOPATHY [None]
  - CONTUSION [None]
  - SKIN DISCOLOURATION [None]
